FAERS Safety Report 8444055 (Version 7)
Quarter: 2012Q4

REPORT INFORMATION
  Report Type: 
  Country: US (occurrence: US)
  Receive Date: 20120306
  Receipt Date: 20121113
  Transmission Date: 20130627
  Serious: Yes (Hospitalization, Disabling, Other)
  Sender: FDA-Public Use
  Company Number: US-009507513-1203USA00413

PATIENT

DRUGS (26)
  1. FOSAMAX [Suspect]
     Indication: OSTEOPENIA
     Dosage: 5 mg, UNK
     Route: 048
     Dates: start: 20010920, end: 200209
  2. FOSAMAX [Suspect]
     Indication: OSTEOPOROSIS
     Dosage: 10 mg, UNK
     Route: 048
     Dates: start: 200309, end: 200402
  3. FOSAMAX [Suspect]
     Dosage: 70 mg, qw
     Route: 048
     Dates: start: 200505, end: 200802
  4. FOSAMAX [Suspect]
     Indication: OSTEOPOROSIS
     Dosage: 70 mg, qw
     Route: 048
     Dates: start: 200802, end: 201109
  5. FOSAMAX [Suspect]
     Indication: OSTEOPENIA
  6. ALENDRONATE SODIUM [Suspect]
     Indication: OSTEOPOROSIS
     Dosage: 70 mg, qw
     Route: 048
     Dates: start: 20080815, end: 20110808
  7. ALENDRONATE SODIUM [Suspect]
     Indication: OSTEOPENIA
  8. CALCIUM (UNSPECIFIED) [Concomitant]
     Indication: OSTEOPOROSIS
     Dosage: 600 mg, UNK
     Dates: start: 2001
  9. CALCIUM (UNSPECIFIED) [Concomitant]
     Indication: OSTEOPENIA
     Dosage: 1.5 g, qd
  10. CALCIUM (UNSPECIFIED) [Concomitant]
     Dosage: 1200 DF, UNK
  11. VITAMIN D (UNSPECIFIED) [Concomitant]
     Indication: OSTEOPOROSIS
     Dosage: 400 IU, qd
     Dates: start: 2001
  12. VITAMIN D (UNSPECIFIED) [Concomitant]
     Indication: OSTEOPENIA
     Dosage: 50000 IU, UNK
     Dates: start: 2001
  13. VITAMINS (UNSPECIFIED) [Concomitant]
     Indication: OSTEOPENIA
     Dosage: 1 DF, qd
     Dates: start: 1984
  14. MIRAPEX [Concomitant]
     Indication: RESTLESS LEGS SYNDROME
     Dosage: 0.5 mg, qam
     Dates: start: 1998
  15. MIRAPEX [Concomitant]
     Dosage: 1 mg, qpm
  16. MIRAPEX [Concomitant]
     Dosage: 1 mg, bid
  17. MIRAPEX [Concomitant]
     Dosage: 0.5 mg, bid
  18. MIRAPEX [Concomitant]
     Dosage: 0.25 mg, bid
     Route: 048
  19. PRAMIPEXOLE [Concomitant]
     Indication: RESTLESS LEGS SYNDROME
     Dosage: UNK
     Dates: start: 2000
  20. HORMONES (UNSPECIFIED) [Concomitant]
     Indication: OSTEOPOROSIS
     Dosage: UNK
     Dates: start: 1993
  21. DYAZIDE [Concomitant]
     Indication: HYPERTENSION
     Dosage: 37.5-25 mg, qd
     Route: 048
  22. SINEMET [Concomitant]
     Indication: RESTLESS LEGS SYNDROME
     Dosage: 50/200 mg,hs
     Route: 048
  23. SINEMET [Concomitant]
     Dosage: 25/100 mg, hs
     Route: 048
  24. LOTENSION (BENAZEPRIL HYDROCHLORIDE) [Concomitant]
     Indication: HYPERTENSION
     Dosage: 20 mg, qd
     Route: 048
  25. LOTENSION (BENAZEPRIL HYDROCHLORIDE) [Concomitant]
     Dosage: 10 mg, qd
     Route: 048
  26. CLARITIN [Concomitant]
     Indication: HYPERSENSITIVITY
     Dosage: 10 mg, qd
     Route: 048

REACTIONS (85)
  - Intramedullary rod insertion [Unknown]
  - Low turnover osteopathy [Not Recovered/Not Resolved]
  - Hysterectomy [Unknown]
  - Femur fracture [Unknown]
  - Bladder operation [Unknown]
  - Appendicectomy [Unknown]
  - Skin cancer [Unknown]
  - Vertebroplasty [Unknown]
  - Femur fracture [Not Recovered/Not Resolved]
  - Foot fracture [Unknown]
  - Spinal compression fracture [Unknown]
  - Meniscus injury [Unknown]
  - Rib fracture [Unknown]
  - Vitamin D deficiency [Unknown]
  - Osteoarthritis [Unknown]
  - Stress urinary incontinence [Unknown]
  - Synovial cyst [Unknown]
  - Osteoarthritis [Unknown]
  - Chondropathy [Unknown]
  - Patellofemoral pain syndrome [Unknown]
  - Tendon disorder [Unknown]
  - Fall [Unknown]
  - Muscle strain [Unknown]
  - Excoriation [Unknown]
  - Lyme disease [Unknown]
  - Asthma [Unknown]
  - Contusion [Unknown]
  - Body height decreased [Unknown]
  - Joint effusion [Unknown]
  - Tendonitis [Unknown]
  - Dyspnoea [Unknown]
  - Nodule [Unknown]
  - Impaired healing [Unknown]
  - Tendonitis [Unknown]
  - Blood pressure increased [Unknown]
  - Chondroplasty [Unknown]
  - Synovectomy [Unknown]
  - Removal of foreign body from joint [Unknown]
  - Meniscus removal [Unknown]
  - Loose body in joint [Unknown]
  - Synovitis [Unknown]
  - Exostosis [Unknown]
  - Thrombocytopenia [Unknown]
  - Fatigue [Unknown]
  - Chronic obstructive pulmonary disease [Unknown]
  - Sciatica [Unknown]
  - Snake bite [Unknown]
  - Kyphosis [Unknown]
  - Atelectasis [Unknown]
  - Synovial rupture [Unknown]
  - Meniscus injury [Unknown]
  - Hiatus hernia [Unknown]
  - Cyst [Unknown]
  - Contusion [Unknown]
  - Hypertension [Unknown]
  - Chest pain [Unknown]
  - Dyspnoea exertional [Unknown]
  - Adjustment disorder with mixed anxiety and depressed mood [Unknown]
  - Pain [Unknown]
  - Libido decreased [Unknown]
  - Drug intolerance [Unknown]
  - Fracture nonunion [Unknown]
  - Osteoarthritis [Unknown]
  - Hyperkalaemia [Unknown]
  - Spinal compression fracture [Unknown]
  - Pleural effusion [Unknown]
  - Adhesion [Unknown]
  - Ligament sprain [Unknown]
  - Pleural fistula [Unknown]
  - Flank pain [Unknown]
  - Rib fracture [Unknown]
  - Lung disorder [Unknown]
  - Contusion [Unknown]
  - Musculoskeletal chest pain [Unknown]
  - Headache [Unknown]
  - Muscle spasms [Unknown]
  - Pain in extremity [Unknown]
  - Constipation [Unknown]
  - Drug ineffective [Unknown]
  - Oedema peripheral [Unknown]
  - Pain in extremity [Unknown]
  - Pain in extremity [Unknown]
  - Abdominal pain [Unknown]
  - Vomiting [Unknown]
  - Diarrhoea [Unknown]
